FAERS Safety Report 8444780-7 (Version None)
Quarter: 2012Q2

REPORT INFORMATION
  Report Type: 
  Country: None (occurrence: None)
  Receive Date: 20120611
  Receipt Date: 20120601
  Transmission Date: 20120825
  Serious: Yes (Other)
  Sender: FDA-Public Use
  Company Number: AUR-APL-2012-02531

PATIENT
  Age: 59 Year
  Sex: Male
  Weight: 170.0989 kg

DRUGS (9)
  1. LISINOPRIL [Suspect]
     Indication: HYPERTENSION
  2. METFORMIN HCL [Suspect]
     Indication: DIABETES MELLITUS
     Dosage: 1000 MG (500 MG, 2 IN 1 D)
     Dates: end: 20120101
  3. ZYVOX [Suspect]
     Indication: STAPHYLOCOCCAL INFECTION
     Dosage: 1200 MG (600 MG, 2 IN 1 D), ORAL
     Route: 048
     Dates: start: 20120601
  4. BUPROPION HCL [Suspect]
     Indication: DEPRESSION
     Dosage: 300 MG (150 MG, 2 IN 1 D)
  5. FUROSEMIDE [Suspect]
     Indication: OEDEMA PERIPHERAL
     Dosage: (1 IN 1 D)
  6. DOXYCYCLINE [Suspect]
     Indication: STAPHYLOCOCCAL INFECTION
     Dosage: 200 MG (100 MG, 2 IN 1 D)
     Dates: end: 20120101
  7. METOPROLOL TARTRATE [Suspect]
     Indication: HYPERTENSION
     Dosage: 150 MG (50 MG, 3 IN 1 D)
  8. CARBOHYDRATES (CARBOHYDRATES) [Suspect]
     Indication: PRODUCT USED FOR UNKNOWN INDICATION
  9. PRAVASTATIN SODIUM [Suspect]
     Indication: PRODUCT USED FOR UNKNOWN INDICATION
     Dosage: 40 MG (40 MG, 1 IN 1 D)

REACTIONS (8)
  - INAPPROPRIATE SCHEDULE OF DRUG ADMINISTRATION [None]
  - BLOOD GLUCOSE DECREASED [None]
  - FOOD POISONING [None]
  - DIARRHOEA [None]
  - RENAL PAIN [None]
  - NAUSEA [None]
  - GLYCOSYLATED HAEMOGLOBIN DECREASED [None]
  - DRUG HYPERSENSITIVITY [None]
